FAERS Safety Report 25374284 (Version 1)
Quarter: 2025Q2

REPORT INFORMATION
  Report Type: Spontaneous
  Country: CA (occurrence: CA)
  Receive Date: 20250529
  Receipt Date: 20250529
  Transmission Date: 20250716
  Serious: Yes (Life-Threatening)
  Sender: TEVA
  Company Number: CA-TEVA-VS-3334984

PATIENT
  Age: 71 Year
  Sex: Male

DRUGS (2)
  1. PREDNISONE [Suspect]
     Active Substance: PREDNISONE
     Indication: Anaemia
     Route: 065
  2. FOLIC ACID [Suspect]
     Active Substance: FOLIC ACID
     Indication: Anaemia
     Route: 065

REACTIONS (4)
  - Drug dependence [Unknown]
  - Confusional state [Unknown]
  - Hypertension [Unknown]
  - Blood glucose abnormal [Unknown]
